FAERS Safety Report 13807520 (Version 3)
Quarter: 2017Q4

REPORT INFORMATION
  Report Type: Report from Study
  Country: IT (occurrence: IT)
  Receive Date: 20170728
  Receipt Date: 20171108
  Transmission Date: 20180320
  Serious: Yes (Other)
  Sender: FDA-Public Use
  Company Number: IT-TEVA-790396ACC

PATIENT
  Age: 80 Year
  Sex: Female

DRUGS (8)
  1. TALOFEN [Interacting]
     Active Substance: PROMAZINE HYDROCHLORIDE
     Indication: SENILE DEMENTIA
     Dosage: 45 GTT DAILY;
     Route: 048
     Dates: start: 20170101, end: 20170625
  2. ADESITRIN - 5 MG/24 H CEROTTI TRANSDERMICI-UCB PHARMA S.P.A. [Concomitant]
     Indication: PRODUCT USED FOR UNKNOWN INDICATION
     Dosage: 1 DF
     Route: 062
  3. QUETIAPINA TEVA - 25 MG COMPRESSE RIVESTITE CON FILM [Interacting]
     Active Substance: QUETIAPINE
     Indication: SENILE DEMENTIA
     Dosage: 2 DOSAGE FORMS DAILY;
     Route: 048
     Dates: start: 20140101, end: 20170625
  4. QUETIAPINA TEVA - 300 MG COMPRESSE RIVESTITE CON FILM [Suspect]
     Active Substance: QUETIAPINE FUMARATE
     Indication: SENILE DEMENTIA
     Dosage: 300 MILLIGRAM DAILY;
     Route: 048
     Dates: start: 20140101, end: 20170625
  5. EBIXA - 10 MG COMPRESSE FILMRIVESTITE-H.LUNDBECK A/S [Concomitant]
     Indication: PRODUCT USED FOR UNKNOWN INDICATION
     Dosage: 1 DF
     Route: 048
  6. COUMADIN - 5 MG COMPRESSE-BRISTOL MYERS SQUIBB S.R.L. [Concomitant]
     Indication: PRODUCT USED FOR UNKNOWN INDICATION
     Dosage: 1 DF
     Route: 048
  7. DILATREND - 6,25 MG COMPRESSE - CHEPLAPHARM ARZNEIMITTEL GMBH [Concomitant]
     Indication: PRODUCT USED FOR UNKNOWN INDICATION
     Dosage: 1 DF
     Route: 048
  8. TRITTICO - 100 MG COMPRESSERIVESTITE CON FILM - AZIENDE CHIMICHE RIUNI [Interacting]
     Active Substance: TRAZODONE HYDROCHLORIDE
     Indication: MAJOR DEPRESSION
     Dosage: 100 MILLIGRAM DAILY;
     Route: 048
     Dates: start: 20170101, end: 20170625

REACTIONS (5)
  - Hypokinesia [Recovering/Resolving]
  - Bradyphrenia [Recovering/Resolving]
  - Off label use [Unknown]
  - Sopor [Recovering/Resolving]
  - Drug interaction [Unknown]

NARRATIVE: CASE EVENT DATE: 20170625
